FAERS Safety Report 5283463-1 (Version None)
Quarter: 2007Q2

REPORT INFORMATION
  Report Type: 
  Country: None (occurrence: None)
  Receive Date: 20070402
  Receipt Date: 20070327
  Transmission Date: 20071010
  Serious: Yes (Hospitalization)
  Sender: FDA-Public Use
  Company Number: NL-MERCK-0703NLD00026

PATIENT
  Age: 55 Year
  Sex: Male

DRUGS (4)
  1. ZOCOR [Suspect]
     Indication: HYPERCHOLESTEROLAEMIA
     Route: 048
     Dates: start: 19980101, end: 20020101
  2. COZAAR [Concomitant]
     Route: 048
     Dates: start: 19980101
  3. ASPIRIN CALCIUM [Concomitant]
     Route: 048
     Dates: start: 19980101
  4. INSULIN ASPART, BIPHASIC ISOPHANE [INJECTION] [Concomitant]
     Route: 051
     Dates: start: 19980101

REACTIONS (3)
  - CIRCULATORY COLLAPSE [None]
  - DIARRHOEA [None]
  - VOMITING [None]
